FAERS Safety Report 6703936-1 (Version None)
Quarter: 2010Q2

REPORT INFORMATION
  Report Type: 
  Country: None (occurrence: None)
  Receive Date: 20100430
  Receipt Date: 20100419
  Transmission Date: 20101027
  Serious: No
  Sender: FDA-Public Use
  Company Number: GR-PFIZER INC-2009295264

PATIENT
  Age: 82 Year
  Sex: Female

DRUGS (11)
  1. NEURONTIN [Suspect]
     Indication: EPILEPSY
     Dosage: 400 MG, 2X/DAY
     Route: 048
     Dates: start: 20090905, end: 20090914
  2. NEURONTIN [Suspect]
     Dosage: 400 MG, 1X/DAY (MORNING)
     Route: 048
     Dates: start: 20090905, end: 20090905
  3. DEPAKENE [Suspect]
     Indication: EPILEPSY
     Dosage: 500 G, 3X/DAY
     Route: 048
     Dates: start: 20081210
  4. DEPAKENE [Suspect]
     Dosage: 500 G, 3X/DAY
     Route: 048
     Dates: start: 20081210, end: 20081201
  5. DEPAKENE [Suspect]
     Dosage: 500 G, 2X/DAY FOR TWO DAYS
     Route: 048
     Dates: start: 20081201, end: 20081201
  6. DEPAKENE [Suspect]
     Dosage: 500 G, 3X/DAY
     Route: 048
     Dates: start: 20081215, end: 20081201
  7. DEPAKENE [Suspect]
     Dosage: 500 G, 2X/DAY FOR 2 DAYS
     Route: 048
     Dates: start: 20081201, end: 20081219
  8. MEMANTINE [Suspect]
     Indication: AMNESIA
     Dosage: 1 DF, 1X/DAY
     Route: 048
     Dates: start: 20090901, end: 20090903
  9. PHENYTOIN SODIUM CAP [Concomitant]
     Indication: EPILEPSY
     Route: 042
     Dates: start: 20081210
  10. PHENYTOIN SODIUM CAP [Concomitant]
     Route: 042
     Dates: start: 20081215
  11. PLAVIX [Concomitant]
     Indication: ANTICOAGULANT THERAPY
     Dosage: UNK

REACTIONS (8)
  - ALTERED STATE OF CONSCIOUSNESS [None]
  - ASTHENIA [None]
  - BALANCE DISORDER [None]
  - GAIT DISTURBANCE [None]
  - MENTAL IMPAIRMENT [None]
  - PARAESTHESIA [None]
  - SOMNOLENCE [None]
  - URINE ABNORMALITY [None]
